FAERS Safety Report 9668874 (Version 4)
Quarter: 2015Q1

REPORT INFORMATION
  Report Type: Report from Study
  Country: FR (occurrence: FR)
  Receive Date: 20131105
  Receipt Date: 20150119
  Transmission Date: 20150721
  Serious: Yes (Hospitalization)
  Sender: FDA-Public Use
  Company Number: PHHY2013FR048103

PATIENT
  Age: 61 Year
  Sex: Male

DRUGS (5)
  1. CORTANCYL [Suspect]
     Active Substance: PREDNISONE
     Indication: RENAL TRANSPLANT
     Dosage: 5 MG, QD
     Route: 065
     Dates: start: 20130329
  2. BACTRIM [Suspect]
     Active Substance: SULFAMETHOXAZOLE\TRIMETHOPRIM
     Indication: PROPHYLAXIS
     Dosage: UNK
     Route: 065
     Dates: start: 20130329, end: 20130717
  3. PROGRAF [Suspect]
     Active Substance: TACROLIMUS\TACROLIMUS ANHYDROUS
     Indication: RENAL TRANSPLANT
     Dosage: 3 MG, QD
     Route: 065
     Dates: start: 20130329
  4. MYCOPHENOLIC ACID. [Suspect]
     Active Substance: MYCOPHENOLIC ACID
     Indication: RENAL TRANSPLANT
     Dosage: 360 MG, BID
     Route: 048
     Dates: start: 20130329
  5. ROVALCYTE [Suspect]
     Active Substance: VALGANCICLOVIR HYDROCHLORIDE
     Indication: CYTOMEGALOVIRUS INFECTION
     Dosage: 450 MG, UNK
     Route: 065
     Dates: start: 20130329, end: 20130620

REACTIONS (7)
  - Lung disorder [Recovered/Resolved]
  - Viral infection [Unknown]
  - Agranulocytosis [Recovered/Resolved]
  - Cough [Unknown]
  - Leukopenia [Recovered/Resolved]
  - Thrombocytopenia [Not Recovered/Not Resolved]
  - Pyrexia [Recovered/Resolved]

NARRATIVE: CASE EVENT DATE: 20130419
